FAERS Safety Report 10431560 (Version 1)
Quarter: 2014Q3

REPORT INFORMATION
  Report Type: Spontaneous
  Country: CA (occurrence: CA)
  Receive Date: 20140904
  Receipt Date: 20140904
  Transmission Date: 20150326
  Serious: Yes (Disabling)
  Sender: FDA-Public Use
  Company Number: CA-009507513-1409CAN002003

PATIENT
  Age: 34 Year
  Sex: Female

DRUGS (1)
  1. NUVARING [Suspect]
     Active Substance: ETHINYL ESTRADIOL\ETONOGESTREL
     Dosage: UNK
     Route: 065
     Dates: start: 200910

REACTIONS (2)
  - Deep vein thrombosis [Recovering/Resolving]
  - Wheelchair user [Unknown]

NARRATIVE: CASE EVENT DATE: 201111
